FAERS Safety Report 4487039-5 (Version None)
Quarter: 2004Q3

REPORT INFORMATION
  Report Type: 
  Country: None (occurrence: None)
  Receive Date: 20040921
  Receipt Date: 20040326
  Transmission Date: 20050211
  Serious: Yes (Death)
  Sender: FDA-Public Use
  Company Number: 163-20785-04040096

PATIENT
  Age: 48 Year
  Sex: Female
  Weight: 60.1 kg

DRUGS (15)
  1. THALOMID [Suspect]
     Indication: MULTIPLE MYELOMA
     Dosage: 50 MG, QD, ORAL
     Route: 048
     Dates: start: 20020601, end: 20031105
  2. DEXAMETHASONE [Suspect]
     Indication: MULTIPLE MYELOMA
     Dates: start: 20020601, end: 20031105
  3. CISPLATIN [Suspect]
     Indication: MULTIPLE MYELOMA
     Dates: start: 20020601
  4. ADRIAMYCIN PFS [Suspect]
     Indication: MULTIPLE MYELOMA
     Dates: start: 20020601
  5. CYCLOPHOSPHAMIDE [Suspect]
  6. ETOPOSIDE [Suspect]
     Indication: MULTIPLE MYELOMA
     Dates: start: 20020601
  7. ALFA INTERFERON                    (INTERFERON ALFA) [Suspect]
     Indication: MULTIPLE MYELOMA
     Dosage: 1.5 MILLIONS UNITS, 3 TIMES
     Dates: start: 20030801
  8. HYDROCODONE                     (HYDROCODONE HYDROCHLORIDE) [Concomitant]
  9. SENNA (SENNA) [Concomitant]
  10. EFFEXOR (VENLAFAXINE HYDROCHLIDE) [Concomitant]
  11. IMMUNOGLOBULINS (IMMUNOGLOBULINS) [Concomitant]
  12. CELEBREX [Concomitant]
  13. ACYCLOVIR [Concomitant]
  14. TEQUIN [Concomitant]
  15. DIFLUCAN [Concomitant]

REACTIONS (12)
  - COMPRESSION FRACTURE [None]
  - DEATH [None]
  - DEPRESSION [None]
  - DISEASE PROGRESSION [None]
  - DYSPNOEA [None]
  - FATIGUE [None]
  - NAUSEA [None]
  - NEUROPATHY PERIPHERAL [None]
  - PAIN [None]
  - PALPITATIONS [None]
  - PRODUCTIVE COUGH [None]
  - RHINORRHOEA [None]
